FAERS Safety Report 12460841 (Version 1)
Quarter: 2016Q2

REPORT INFORMATION
  Report Type: Spontaneous
  Country: FR (occurrence: FR)
  Receive Date: 20160613
  Receipt Date: 20160613
  Transmission Date: 20160815
  Serious: Yes (Death, Hospitalization, Other)
  Sender: FDA-Public Use
  Company Number: FR-UCBSA-2016021482

PATIENT
  Age: 48 Year
  Sex: Female

DRUGS (14)
  1. VIMPAT [Suspect]
     Active Substance: LACOSAMIDE
     Indication: EPILEPSY
     Dosage: UNK
     Dates: start: 201604
  2. PARACETAMOL [Suspect]
     Active Substance: ACETAMINOPHEN
     Indication: PYREXIA
     Dosage: BETWEEN 1 AND 4 G/DAY
     Route: 042
     Dates: start: 20160420, end: 20160426
  3. NIMOTOP [Concomitant]
     Active Substance: NIMODIPINE
     Indication: CEREBRAL HAEMORRHAGE
     Dosage: UNK
     Route: 042
     Dates: start: 20160421
  4. LEVOTHYROX [Concomitant]
     Active Substance: LEVOTHYROXINE
     Indication: PRODUCT USED FOR UNKNOWN INDICATION
     Dosage: UNK
  5. FENTANYL. [Concomitant]
     Active Substance: FENTANYL
     Indication: SEDATION
     Dosage: 7200 ?G, UNK
     Route: 042
     Dates: start: 20160421, end: 20160508
  6. PREVISCAN [Concomitant]
     Active Substance: FLUINDIONE
     Indication: PRODUCT USED FOR UNKNOWN INDICATION
     Dosage: UNK
  7. KEPPRA [Suspect]
     Active Substance: LEVETIRACETAM
     Dosage: 500 MG, UNK
     Route: 042
     Dates: start: 20160427, end: 20160427
  8. MIDAZOLAM [Suspect]
     Active Substance: MIDAZOLAM\MIDAZOLAM HYDROCHLORIDE
     Indication: SEDATION
     Dosage: UNK
     Route: 042
     Dates: start: 20160420, end: 20160427
  9. NOREPINEPHRINE [Suspect]
     Active Substance: NOREPINEPHRINE\NOREPINEPHRINE BITARTRATE
     Indication: HYPOTENSION
     Dosage: UNK
     Route: 042
     Dates: start: 20160421, end: 20160424
  10. NIMBEX [Suspect]
     Active Substance: CISATRACURIUM BESYLATE
     Indication: NEUROMUSCULAR BLOCKING THERAPY
     Dosage: UNK
     Route: 042
     Dates: start: 20160421, end: 20160427
  11. KEPPRA [Suspect]
     Active Substance: LEVETIRACETAM
     Indication: SEIZURE
     Dosage: 500 MG, UNK
     Route: 042
     Dates: start: 20160420, end: 20160421
  12. KEPPRA [Suspect]
     Active Substance: LEVETIRACETAM
     Dosage: 1G/ DAY
     Route: 042
     Dates: start: 20160422, end: 20160426
  13. RIVOTRIL [Concomitant]
     Active Substance: CLONAZEPAM
     Indication: SEIZURE
     Dosage: 1 AMPOULE
     Dates: start: 20160421, end: 20160421
  14. PRODILANTIN [Concomitant]
     Active Substance: FOSPHENYTOIN SODIUM
     Indication: SEIZURE
     Dosage: UNK
     Dates: start: 20160421, end: 20160421

REACTIONS (4)
  - Hepatomegaly [Unknown]
  - Cerebral haematoma [Fatal]
  - Hepatocellular injury [Recovering/Resolving]
  - Gamma-glutamyltransferase increased [Recovering/Resolving]

NARRATIVE: CASE EVENT DATE: 20160425
